FAERS Safety Report 8564112 (Version 5)
Quarter: 2019Q4

REPORT INFORMATION
  Report Type: Spontaneous
  Country: US (occurrence: US)
  Receive Date: 20120516
  Receipt Date: 20191219
  Transmission Date: 20200122
  Serious: Yes (Other)
  Sender: FDA-Public Use
  Company Number: US-UCBSA-057051

PATIENT
  Age: 47 Year
  Sex: Female

DRUGS (6)
  1. CIMZIA [Suspect]
     Active Substance: CERTOLIZUMAB PEGOL
     Indication: RHEUMATOID ARTHRITIS
     Dosage: 200 MG, EV 2 WEEKS(QOW)
     Route: 058
     Dates: start: 20110218, end: 201205
  2. SOMA [Concomitant]
     Active Substance: CARISOPRODOL
     Indication: MUSCLE SPASMS
     Dosage: 350 MG, 2X/DAY (BID)
     Route: 048
     Dates: start: 2010
  3. NEURONTIN [Concomitant]
     Active Substance: GABAPENTIN
     Indication: MYALGIA
     Dosage: 800 MG, 4X/DAY (QID)
     Route: 048
     Dates: start: 2010
  4. NEURONTIN [Concomitant]
     Active Substance: GABAPENTIN
     Indication: MENOPAUSE
  5. CYMBALTA [Concomitant]
     Active Substance: DULOXETINE HYDROCHLORIDE
     Indication: MYALGIA
     Dosage: 60 MG, ONCE DAILY (QD)
     Route: 048
     Dates: start: 2010
  6. METHOTREXATE. [Concomitant]
     Active Substance: METHOTREXATE
     Indication: RHEUMATOID ARTHRITIS
     Dosage: 5 TABLETS PER WEEK
     Route: 048
     Dates: start: 2010

REACTIONS (1)
  - Rash [Unknown]

NARRATIVE: CASE EVENT DATE: 201108
